FAERS Safety Report 4724793-9 (Version None)
Quarter: 2005Q3

REPORT INFORMATION
  Report Type: 
  Country: None (occurrence: None)
  Receive Date: 20050726
  Receipt Date: 20050718
  Transmission Date: 20060218
  Serious: Yes (Hospitalization)
  Sender: FDA-Public Use
  Company Number: 2005CG01259

PATIENT
  Age: 68 Year
  Sex: Male

DRUGS (10)
  1. HYTACAND [Suspect]
     Indication: HYPERTENSION
     Dosage: 16 + 12.5 MG QD
     Route: 048
  2. EUPRESSYL [Interacting]
     Indication: HYPERTENSION
     Route: 048
  3. ZANIDIP [Interacting]
     Indication: HYPERTENSION
     Route: 048
     Dates: end: 20050420
  4. SOPROL [Interacting]
     Indication: HYPERTENSION
     Route: 048
  5. NOOTROPYL [Concomitant]
     Route: 048
  6. BIPERIDYS [Concomitant]
     Route: 048
  7. METFORMIN [Concomitant]
     Route: 048
  8. LIPIREX [Concomitant]
     Route: 048
  9. AVANDIA [Concomitant]
     Route: 048
  10. ALLOPURINOL [Concomitant]
     Route: 048

REACTIONS (7)
  - AMNESIA [None]
  - DIARRHOEA [None]
  - DRUG INTERACTION [None]
  - FACE INJURY [None]
  - LOSS OF CONSCIOUSNESS [None]
  - MALAISE [None]
  - ORTHOSTATIC HYPOTENSION [None]
